FAERS Safety Report 23692220 (Version 1)
Quarter: 2024Q1

REPORT INFORMATION
  Report Type: Spontaneous
  Country: US (occurrence: None)
  Receive Date: 20240329
  Receipt Date: 20240329
  Transmission Date: 20240410
  Serious: No
  Sender: FDA-Public Use
  Company Number: None

PATIENT
  Sex: Female

DRUGS (4)
  1. OXBRYTA [Suspect]
     Active Substance: VOXELOTOR
     Dosage: FREQUENCY : DAILY;?
     Route: 048
     Dates: start: 202006
  2. OPSUMIT [Concomitant]
     Active Substance: MACITENTAN
  3. MIRENA IUD SYS [Concomitant]
  4. OPSUMIT [Concomitant]
     Active Substance: MACITENTAN

REACTIONS (1)
  - Death [None]
